FAERS Safety Report 10958586 (Version 1)
Quarter: 2015Q1

REPORT INFORMATION
  Report Type: Spontaneous
  Country: US (occurrence: US)
  Receive Date: 20150326
  Receipt Date: 20150326
  Transmission Date: 20150721
  Serious: No
  Sender: FDA-Public Use
  Company Number: US-GLAXOSMITHKLINE-US2015GSK039531

PATIENT
  Age: 66 Year
  Sex: Male
  Weight: 99.77 kg

DRUGS (8)
  1. EDARBI TABLET [Concomitant]
     Dosage: 40 MG, U
  2. OXYCODONE HYDROCHLORIDE TABLET [Concomitant]
     Dosage: 10 MG, U
  3. FLUTICASONE PROPIONATE. [Concomitant]
     Active Substance: FLUTICASONE PROPIONATE
  4. FISH OIL TABLET [Concomitant]
     Dosage: 1000 MG, U
  5. VOTRIENT [Suspect]
     Active Substance: PAZOPANIB HYDROCHLORIDE
     Indication: RENAL CANCER
     Dosage: 800 MG, QD
     Dates: start: 20150211, end: 20150319
  6. ZOFRAN [Concomitant]
     Active Substance: ONDANSETRON HYDROCHLORIDE
     Dosage: 8 MG, U
  7. SIMVASTATIN TABLET [Concomitant]
     Active Substance: SIMVASTATIN
     Dosage: 20 MG, U
  8. VITAMIN B-12 TABLET [Concomitant]
     Dosage: 1000 UG, U

REACTIONS (1)
  - Oropharyngeal pain [Recovering/Resolving]

NARRATIVE: CASE EVENT DATE: 20150319
